FAERS Safety Report 10370476 (Version 1)
Quarter: 2014Q1

REPORT INFORMATION
  Report Type: Spontaneous
  Country: US (occurrence: None)
  Receive Date: 20140306
  Receipt Date: 20140306
  Transmission Date: 20141002
  Serious: Yes (Hospitalization, Other)
  Sender: FDA-Public Use
  Company Number: 163-21880-13093955

PATIENT
  Age: 85 Year
  Sex: Male

DRUGS (7)
  1. REVLIMID [Suspect]
     Indication: PLASMA CELL MYELOMA
     Route: 048
     Dates: start: 20101210
  2. DEXAMETHASONE (UNKNOWN) [Concomitant]
  3. ZOLPIDEM (UNKNOWN) [Concomitant]
  4. DOXAZOSIN (UNKNOWN) [Concomitant]
  5. ACYCLOVIR (ACICLOVIR) (UNKNOWN) [Concomitant]
  6. ASPIRIN (ACETYLSALICYLIC ACID) (UNKNOWN) (ACETYLSALICYLIC ACID) [Concomitant]
  7. FE (TEGAFUR) (UNKNOWN) [Concomitant]

REACTIONS (1)
  - Deep vein thrombosis [None]
